FAERS Safety Report 9557447 (Version 2)
Quarter: 2013Q3

REPORT INFORMATION
  Report Type: Spontaneous
  Country: AU (occurrence: AU)
  Receive Date: 20130926
  Receipt Date: 20130930
  Transmission Date: 20140515
  Serious: Yes (Hospitalization)
  Sender: FDA-Public Use
  Company Number: AU-BAYER-2013-114622

PATIENT
  Age: 59 Year
  Sex: Male

DRUGS (2)
  1. ULTRAVIST [Suspect]
     Dosage: 5 ML, UNK
     Route: 037
     Dates: start: 20130909, end: 20130909
  2. INSULIN [INSULIN] [Concomitant]
     Indication: TYPE 2 DIABETES MELLITUS

REACTIONS (7)
  - Spinal cord oedema [Recovering/Resolving]
  - Quadriplegia [Recovering/Resolving]
  - Hypoaesthesia [Recovering/Resolving]
  - Areflexia [Recovering/Resolving]
  - Choking [Recovering/Resolving]
  - Motor dysfunction [Recovering/Resolving]
  - Panic attack [None]
